FAERS Safety Report 9032998 (Version 1)
Quarter: 2013Q1

REPORT INFORMATION
  Report Type: Report from Study
  Country: BE (occurrence: BE)
  Receive Date: 20130128
  Receipt Date: 20130128
  Transmission Date: 20140127
  Serious: Yes (Death, Life-Threatening, Hospitalization, Other)
  Sender: FDA-Public Use
  Company Number: BE-009507513-0901USA02839

PATIENT
  Age: 60 Year
  Sex: Male
  Weight: 62.5 kg

DRUGS (15)
  1. VORINOSTAT [Suspect]
     Indication: PLASMA CELL MYELOMA
     Dosage: D1-D14
     Route: 048
     Dates: start: 20090109, end: 20090302
  2. BORTEZOMIB [Suspect]
     Indication: PLASMA CELL MYELOMA
     Dosage: 4 TIMES EACH CYCLE
     Route: 041
     Dates: start: 20090109, end: 20090302
  3. DOXYCYCLINE [Concomitant]
     Indication: PRODUCTIVE COUGH
     Dosage: 100 MG, QD
     Route: 048
     Dates: start: 20081223, end: 20090117
  4. BIFITERAL [Concomitant]
     Indication: AMMONIA INCREASED
     Dosage: 30 ML, TID
     Route: 048
     Dates: start: 20081111, end: 20090302
  5. NEXIAM [Concomitant]
     Indication: PROPHYLAXIS AGAINST GASTROINTESTINAL ULCER
     Dosage: 40 MG, QD
     Route: 048
     Dates: start: 20060309, end: 20090302
  6. ZYLORIC [Concomitant]
     Indication: PROPHYLAXIS
     Dosage: 100 MG, QD
     Route: 048
     Dates: start: 20090109, end: 20090302
  7. KONAKION [Concomitant]
     Indication: HAEMORRHAGE
     Dosage: 10 MG, QD
     Route: 048
     Dates: start: 20090108, end: 20090302
  8. ROCEPHIN [Concomitant]
  9. STAPHYCID CAPSULES [Concomitant]
  10. PENSTAPHO [Concomitant]
  11. DALACIN C [Concomitant]
  12. PLATELET CONCENTRATE [Concomitant]
  13. BLOOD CELLS, RED [Concomitant]
  14. MOTILIUM [Concomitant]
  15. LITICAN [Concomitant]

REACTIONS (12)
  - Pneumonia [Fatal]
  - Blood creatinine increased [Recovered/Resolved]
  - Pyrexia [Recovered/Resolved]
  - Blood creatinine increased [Recovered/Resolved]
  - Inappropriate antidiuretic hormone secretion [Recovered/Resolved]
  - Pleural effusion [Not Recovered/Not Resolved]
  - Blood creatinine increased [Not Recovered/Not Resolved]
  - Staphylococcal infection [Recovered/Resolved]
  - Thrombocytopenia [Not Recovered/Not Resolved]
  - Hyponatraemia [Recovered/Resolved]
  - Immunodeficiency [Not Recovered/Not Resolved]
  - Renal failure acute [Not Recovered/Not Resolved]
